FAERS Safety Report 12610615 (Version 1)
Quarter: 2016Q3

REPORT INFORMATION
  Report Type: Report from Study
  Country: BE (occurrence: BE)
  Receive Date: 20160801
  Receipt Date: 20160801
  Transmission Date: 20161109
  Serious: Yes (Death, Hospitalization, Disabling)
  Sender: FDA-Public Use
  Company Number: BE-009507513-1607BEL011429

PATIENT
  Age: 66 Year
  Sex: Male
  Weight: 74 kg

DRUGS (1)
  1. NOXAFIL [Suspect]
     Active Substance: POSACONAZOLE
     Indication: PRODUCT USED FOR UNKNOWN INDICATION

REACTIONS (5)
  - Acute graft versus host disease in intestine [Fatal]
  - Cytomegalovirus colitis [Unknown]
  - Septic shock [Fatal]
  - Diarrhoea [Not Recovered/Not Resolved]
  - Acute graft versus host disease in liver [Fatal]

NARRATIVE: CASE EVENT DATE: 20151011
